FAERS Safety Report 4477916-3 (Version None)
Quarter: 2004Q4

REPORT INFORMATION
  Report Type: 
  Country: None (occurrence: None)
  Receive Date: 20041014
  Receipt Date: 20040930
  Transmission Date: 20050328
  Serious: Yes (Other)
  Sender: FDA-Public Use
  Company Number: CZ-2004-031566

PATIENT
  Age: 22 Year
  Sex: Female
  Weight: 50 kg

DRUGS (1)
  1. YASMIN (YASMIN 20 (DRSP + EE(SH T 186 D)))DROSPERIDONE, ETHINYLESTRADI [Suspect]
     Indication: ORAL CONTRACEPTION
     Dosage: 1 TAB(S), 1X/DAY, ORAL
     Route: 048
     Dates: start: 20040719, end: 20040907

REACTIONS (6)
  - ARTHRALGIA [None]
  - DEEP VEIN THROMBOSIS [None]
  - JOINT SWELLING [None]
  - NERVOUS SYSTEM DISORDER [None]
  - PARAESTHESIA [None]
  - POLYNEUROPATHY [None]
